FAERS Safety Report 12753532 (Version 2)
Quarter: 2016Q3

REPORT INFORMATION
  Report Type: Spontaneous
  Country: US (occurrence: US)
  Receive Date: 20160916
  Receipt Date: 20160922
  Transmission Date: 20161109
  Serious: No
  Sender: FDA-Public Use
  Company Number: US-PFIZER INC-2016432517

PATIENT
  Age: 75 Year
  Sex: Female

DRUGS (10)
  1. ADVIL [Suspect]
     Active Substance: IBUPROFEN
     Dosage: UNK
  2. ERYTHROMYCIN. [Suspect]
     Active Substance: ERYTHROMYCIN
     Dosage: UNK
  3. CODEINE PHOSPHATE [Suspect]
     Active Substance: CODEINE PHOSPHATE
     Dosage: UNK
  4. PERCOCET [Suspect]
     Active Substance: ACETAMINOPHEN\OXYCODONE HYDROCHLORIDE
     Dosage: UNK
  5. NAPROXEN. [Suspect]
     Active Substance: NAPROXEN
  6. IBUPROFEN. [Suspect]
     Active Substance: IBUPROFEN
  7. DEMEROL [Suspect]
     Active Substance: MEPERIDINE HYDROCHLORIDE
     Dosage: UNK
  8. NAPROSYN [Suspect]
     Active Substance: NAPROXEN
     Dosage: UNK
  9. ALEVE [Suspect]
     Active Substance: NAPROXEN SODIUM
     Dosage: UNK
  10. TROPICAMIDE OPHTHALMIC SOLUTION, USP [Suspect]
     Active Substance: TROPICAMIDE
     Route: 047

REACTIONS (1)
  - Drug hypersensitivity [Unknown]
